FAERS Safety Report 20598738 (Version 2)
Quarter: 2022Q1

REPORT INFORMATION
  Report Type: Spontaneous
  Country: US (occurrence: None)
  Receive Date: 20220315
  Receipt Date: 20220316
  Transmission Date: 20220423
  Serious: No
  Sender: FDA-Public Use
  Company Number: US-ROCHE-2897024

PATIENT
  Sex: Male

DRUGS (3)
  1. XOLAIR [Suspect]
     Active Substance: OMALIZUMAB
     Indication: Product used for unknown indication
     Route: 065
  2. MINERALS\VITAMINS [Concomitant]
     Active Substance: MINERALS\VITAMINS
  3. NICOTINAMIDE [Concomitant]
     Active Substance: NIACINAMIDE

REACTIONS (4)
  - Drug ineffective [Unknown]
  - Urticaria [Unknown]
  - Intentional product misuse [Unknown]
  - Off label use [Unknown]
